FAERS Safety Report 25872742 (Version 1)
Quarter: 2025Q4

REPORT INFORMATION
  Report Type: Spontaneous
  Country: EU (occurrence: EU)
  Receive Date: 20251002
  Receipt Date: 20251002
  Transmission Date: 20260118
  Serious: Yes (Death, Hospitalization, Other)
  Sender: BOEHRINGER INGELHEIM
  Company Number: EU-BoehringerIngelheim-2025-BI-098467

PATIENT
  Age: 82 Year
  Sex: Male
  Weight: 70 kg

DRUGS (4)
  1. DABIGATRAN [Suspect]
     Active Substance: DABIGATRAN
     Indication: Atrial fibrillation
  2. FUROSEMIDE [Concomitant]
     Active Substance: FUROSEMIDE
     Indication: Hypertensive heart disease
  3. BICTEGRAVIR\EMTRICITABINE\TENOFOVIR ALAFENAMIDE [Concomitant]
     Active Substance: BICTEGRAVIR\EMTRICITABINE\TENOFOVIR ALAFENAMIDE
     Indication: HIV infection
  4. AMIODARONE [Concomitant]
     Active Substance: AMIODARONE
     Indication: Atrial fibrillation

REACTIONS (12)
  - Nosocomial infection [Fatal]
  - Normochromic normocytic anaemia [Unknown]
  - Cardiac failure [Unknown]
  - Acute kidney injury [Recovered/Resolved]
  - Haemorrhage [Recovered/Resolved]
  - Rhabdomyolysis [Unknown]
  - Overdose [Unknown]
  - Melaena [Recovered/Resolved]
  - Gastritis [Unknown]
  - Rectal haemorrhage [Recovered/Resolved]
  - Gastric ulcer [Unknown]
  - Duodenitis [Unknown]
